FAERS Safety Report 25188795 (Version 1)
Quarter: 2025Q2

REPORT INFORMATION
  Report Type: Spontaneous
  Country: US (occurrence: US)
  Receive Date: 20250411
  Receipt Date: 20250411
  Transmission Date: 20250716
  Serious: Yes (Other)
  Sender: ZYDUS PHARM
  Company Number: US-CADILA HEALTHCARE LIMITED-US-ZYDUS-121814

PATIENT

DRUGS (18)
  1. CLOMIPRAMINE [Interacting]
     Active Substance: CLOMIPRAMINE
     Indication: Major depression
     Route: 065
  2. ATOMOXETINE [Suspect]
     Active Substance: ATOMOXETINE
     Indication: Depression
     Route: 065
  3. LIDOCAINE [Interacting]
     Active Substance: LIDOCAINE
     Indication: Induction of anaesthesia
     Route: 042
  4. DIAZEPAM [Concomitant]
     Active Substance: DIAZEPAM
     Indication: Seizure
     Route: 042
  5. GABAPENTIN [Concomitant]
     Active Substance: GABAPENTIN
     Indication: Major depression
     Route: 065
  6. KETAMINE [Concomitant]
     Active Substance: KETAMINE
     Indication: Major depression
     Route: 030
  7. LEVETIRACETAM [Concomitant]
     Active Substance: LEVETIRACETAM
     Indication: Seizure
     Route: 042
  8. LORAZEPAM [Concomitant]
     Active Substance: LORAZEPAM
     Indication: Seizure
     Route: 042
  9. METHOHEXITAL [Concomitant]
     Active Substance: METHOHEXITAL
     Indication: Induction of anaesthesia
     Route: 042
  10. MIDAZOLAM [Concomitant]
     Active Substance: MIDAZOLAM
     Indication: Generalised tonic-clonic seizure
     Route: 042
  11. MIDAZOLAM [Concomitant]
     Active Substance: MIDAZOLAM
     Route: 042
  12. MIDAZOLAM [Concomitant]
     Active Substance: MIDAZOLAM
     Route: 042
  13. MIDAZOLAM [Concomitant]
     Active Substance: MIDAZOLAM
     Route: 042
  14. PROPOFOL [Concomitant]
     Active Substance: PROPOFOL
     Indication: Seizure
     Route: 042
  15. PROPOFOL [Concomitant]
     Active Substance: PROPOFOL
     Route: 042
  16. PROPOFOL [Concomitant]
     Active Substance: PROPOFOL
     Route: 042
  17. PROPOFOL [Concomitant]
     Active Substance: PROPOFOL
     Route: 042
  18. SUXAMETHONIUM BROMIDE [Concomitant]
     Active Substance: SUXAMETHONIUM BROMIDE
     Indication: Induction of anaesthesia
     Route: 042

REACTIONS (3)
  - Status epilepticus [Recovered/Resolved]
  - Drug interaction [Unknown]
  - Drug ineffective [Unknown]
